FAERS Safety Report 9286790 (Version 2)
Quarter: 2013Q2

REPORT INFORMATION
  Report Type: Spontaneous
  Country: CA (occurrence: None)
  Receive Date: 20130509
  Receipt Date: 20130524
  Transmission Date: 20140414
  Serious: Yes (Hospitalization)
  Sender: FDA-Public Use
  Company Number: ACO_36003_2013

PATIENT
  Age: 39 Year
  Sex: Female

DRUGS (1)
  1. FAMPYRA [Suspect]
     Indication: MULTIPLE SCLEROSIS
     Route: 048
     Dates: start: 20130418, end: 20130419

REACTIONS (1)
  - Convulsion [None]
